FAERS Safety Report 6998596-9 (Version None)
Quarter: 2010Q3

REPORT INFORMATION
  Report Type: 
  Country: None (occurrence: None)
  Receive Date: 20100920
  Receipt Date: 20091221
  Transmission Date: 20110219
  Serious: Yes (Other)
  Sender: FDA-Public Use
  Company Number: US-ASTRAZENECA-2007UW12517

PATIENT
  Age: 16258 Day
  Sex: Female
  Weight: 81.2 kg

DRUGS (1)
  1. SEROQUEL [Suspect]
     Indication: BIPOLAR DISORDER
     Route: 048
     Dates: start: 20011101, end: 20040101

REACTIONS (2)
  - RENAL FAILURE [None]
  - TYPE 1 DIABETES MELLITUS [None]
